FAERS Safety Report 18404379 (Version 2)
Quarter: 2020Q4

REPORT INFORMATION
  Report Type: Spontaneous
  Country: US (occurrence: US)
  Receive Date: 20201020
  Receipt Date: 20201020
  Transmission Date: 20210114
  Serious: No
  Sender: FDA-Public Use
  Company Number: US-SHIRE-US202034459

PATIENT
  Age: 32 Year
  Sex: Male

DRUGS (1)
  1. VPRIV [Suspect]
     Active Substance: VELAGLUCERASE ALFA
     Indication: GAUCHER^S DISEASE
     Dosage: UNK UNK, 2X A MONTH
     Route: 042
     Dates: start: 20100507

REACTIONS (1)
  - Paraesthesia [Recovering/Resolving]

NARRATIVE: CASE EVENT DATE: 20201011
